FAERS Safety Report 6562592-6 (Version None)
Quarter: 2010Q1

REPORT INFORMATION
  Report Type: 
  Country: None (occurrence: None)
  Receive Date: 20100130
  Receipt Date: 20091117
  Transmission Date: 20100710
  Serious: No
  Sender: FDA-Public Use
  Company Number: US-ABBOTT-09P-163-0609962-00

PATIENT
  Sex: Female
  Weight: 88.53 kg

DRUGS (21)
  1. HUMIRA [Suspect]
     Indication: RHEUMATOID ARTHRITIS
     Dates: start: 20090922
  2. HUMIRA [Suspect]
     Dates: start: 20070101, end: 20080601
  3. CORTEF [Concomitant]
     Indication: ADDISON'S DISEASE
  4. HYDROCODONE [Concomitant]
     Indication: RHEUMATOID ARTHRITIS
  5. HYDROCODONE [Concomitant]
     Indication: OSTEOARTHRITIS
  6. NORVASC [Concomitant]
     Indication: HYPERTENSION
  7. CARDIZEM CD [Concomitant]
     Indication: HYPERTENSION
  8. LISINOPRIL [Concomitant]
     Indication: HYPERTENSION
     Dates: end: 20091001
  9. JANUVIA [Concomitant]
     Indication: DIABETES MELLITUS
  10. ZOFRAN [Concomitant]
     Indication: NAUSEA
  11. PHENERGAN HCL [Concomitant]
     Indication: NAUSEA
  12. REGLAN [Concomitant]
     Indication: NAUSEA
     Dates: end: 20080101
  13. SIMVASTATIN [Concomitant]
     Indication: BLOOD CHOLESTEROL INCREASED
  14. NEXIUM [Concomitant]
     Indication: GASTROOESOPHAGEAL REFLUX DISEASE
  15. XANAX [Concomitant]
     Indication: ANXIETY
     Dosage: DAILY AT NIGHT
     Dates: start: 20090101
  16. AMBIEN [Concomitant]
     Indication: INSOMNIA
  17. SENNA [Concomitant]
     Indication: CONSTIPATION
     Route: 048
  18. ADVAIR DISKUS 100/50 [Concomitant]
     Indication: CHRONIC OBSTRUCTIVE PULMONARY DISEASE
     Dates: end: 20080101
  19. CALCIUM [Concomitant]
     Indication: VITAMIN SUPPLEMENTATION
  20. VITAMIN D [Concomitant]
     Indication: MINERAL SUPPLEMENTATION
  21. FENTANYL [Concomitant]
     Indication: RHEUMATOID ARTHRITIS
     Route: 062
     Dates: start: 20090101, end: 20090101

REACTIONS (9)
  - ARTHRALGIA [None]
  - BACK PAIN [None]
  - DRUG INEFFECTIVE [None]
  - JOINT SWELLING [None]
  - LUMBAR VERTEBRAL FRACTURE [None]
  - MUSCULOSKELETAL PAIN [None]
  - OSTEOPOROSIS [None]
  - PAIN IN EXTREMITY [None]
  - THORACIC VERTEBRAL FRACTURE [None]
